FAERS Safety Report 7303699-5 (Version None)
Quarter: 2011Q1

REPORT INFORMATION
  Report Type: 
  Country: None (occurrence: None)
  Receive Date: 20110221
  Receipt Date: 20110210
  Transmission Date: 20110831
  Serious: Yes (Other)
  Sender: FDA-Public Use
  Company Number: US-ROCHE-731298

PATIENT
  Sex: Female
  Weight: 52.2 kg

DRUGS (2)
  1. ORAL CONTRACEPTIVE NOS [Concomitant]
     Route: 048
  2. ACCUTANE [Suspect]
     Indication: ACNE
     Route: 065
     Dates: start: 19990301, end: 19990801

REACTIONS (7)
  - GASTROINTESTINAL INJURY [None]
  - COLONIC POLYP [None]
  - CROHN'S DISEASE [None]
  - ANAEMIA [None]
  - COLITIS ULCERATIVE [None]
  - ARTHRALGIA [None]
  - DEPRESSION [None]
